FAERS Safety Report 6637613-2 (Version None)
Quarter: 2010Q1

REPORT INFORMATION
  Report Type: 
  Country: None (occurrence: None)
  Receive Date: 20100312
  Receipt Date: 20100108
  Transmission Date: 20100710
  Serious: Yes (Other)
  Sender: FDA-Public Use
  Company Number: 2010US000089

PATIENT
  Age: 92 Year
  Sex: Male

DRUGS (6)
  1. VESICARE [Suspect]
     Indication: HYPERTONIC BLADDER
     Dosage: 5 MG, UID/QD, ORAL
     Route: 048
     Dates: start: 20091101, end: 20091207
  2. LEVOTHYROXINE SODIUM [Concomitant]
  3. COSOPT (TIMOLOL MALEATE) [Concomitant]
  4. NEXIUM IV [Concomitant]
  5. TOPROL-XL [Concomitant]
  6. ZOCOR [Concomitant]

REACTIONS (2)
  - PRURITUS [None]
  - RASH PUSTULAR [None]
